FAERS Safety Report 6433781-6 (Version None)
Quarter: 2009Q4

REPORT INFORMATION
  Report Type: 
  Country: None (occurrence: None)
  Receive Date: 20091110
  Receipt Date: 20090716
  Transmission Date: 20100525
  Serious: No
  Sender: FDA-Public Use
  Company Number: A0797310A

PATIENT
  Age: 70 Year
  Sex: Female

DRUGS (8)
  1. ALTABAX [Suspect]
     Indication: WOUND
     Dosage: 1APP AT NIGHT
     Route: 061
     Dates: start: 20090715, end: 20090715
  2. FUROSEMIDE [Concomitant]
  3. WELCHOL [Concomitant]
  4. EVISTA [Concomitant]
  5. LISINOPRIL [Concomitant]
  6. ATENOLOL [Concomitant]
  7. ASPIRIN [Concomitant]
  8. SENIOR MULTIVITAMIN [Concomitant]

REACTIONS (2)
  - BURNING SENSATION [None]
  - PAIN IN EXTREMITY [None]
